FAERS Safety Report 7628562-1 (Version None)
Quarter: 2011Q3

REPORT INFORMATION
  Report Type: 
  Country: None (occurrence: None)
  Receive Date: 20110720
  Receipt Date: 20110720
  Transmission Date: 20111222
  Serious: Yes (Other)
  Sender: FDA-Public Use
  Company Number: None

PATIENT
  Age: 65 Year
  Sex: Female

DRUGS (1)
  1. PAROXETINE HCL [Suspect]
     Indication: MAJOR DEPRESSION
     Dosage: 2 HS ORAL 8/08 - 9/09
     Route: 048
     Dates: start: 20080801, end: 20090901

REACTIONS (4)
  - APATHY [None]
  - DEPRESSION [None]
  - CRYING [None]
  - MENTAL STATUS CHANGES [None]
